FAERS Safety Report 23339943 (Version 4)
Quarter: 2024Q3

REPORT INFORMATION
  Report Type: Spontaneous
  Country: US (occurrence: US)
  Receive Date: 20231226
  Receipt Date: 20240819
  Transmission Date: 20241017
  Serious: No
  Sender: BRISTOL MYERS SQUIBB
  Company Number: US-BRISTOL-MYERS SQUIBB COMPANY-2023-175565

PATIENT
  Age: 76 Year
  Sex: Female

DRUGS (1)
  1. ORENCIA [Suspect]
     Active Substance: ABATACEPT
     Indication: Product used for unknown indication
     Route: 058

REACTIONS (6)
  - Musculoskeletal stiffness [Unknown]
  - Pain in extremity [Unknown]
  - Drug ineffective [Unknown]
  - Therapy interrupted [Unknown]
  - Pain [Unknown]
  - Product prescribing issue [Unknown]
